FAERS Safety Report 9436562 (Version 1)
Quarter: 2013Q3

REPORT INFORMATION
  Report Type: Spontaneous
  Country: US (occurrence: US)
  Receive Date: 20130802
  Receipt Date: 20130802
  Transmission Date: 20140515
  Serious: No
  Sender: FDA-Public Use
  Company Number: US-OPTIMER-20130191

PATIENT
  Age: 53 Year
  Sex: Female

DRUGS (3)
  1. FIDAXOMICIN [Suspect]
     Indication: CLOSTRIDIUM DIFFICILE COLITIS
     Dosage: UNK
     Dates: start: 20121006, end: 20121015
  2. DAPTOMYCIN [Concomitant]
     Dosage: UNK
     Dates: start: 20121002, end: 20121015
  3. DORIPENEM [Concomitant]
     Dosage: UNK
     Dates: start: 20121005, end: 20121101

REACTIONS (1)
  - White blood cell count increased [Unknown]
